FAERS Safety Report 7878884-4 (Version None)
Quarter: 2011Q4

REPORT INFORMATION
  Report Type: 
  Country: None (occurrence: None)
  Receive Date: 20111024
  Receipt Date: 20110727
  Transmission Date: 20120403
  Serious: Yes (Other)
  Sender: FDA-Public Use
  Company Number: AMAG201100169

PATIENT
  Age: 85 Year
  Sex: Female
  Weight: 70.3 kg

DRUGS (14)
  1. NITROGLYCERIN [Concomitant]
  2. FERAHEME [Suspect]
     Indication: IRON DEFICIENCY ANAEMIA
     Dosage: 510 MG, SINGLE, INTRAUMOR
     Route: 036
     Dates: start: 20110727, end: 20110727
  3. CYTOMEL [Concomitant]
  4. LIPITOR [Concomitant]
  5. POTASSIUM CHLORIDE [Concomitant]
  6. BUMEX [Concomitant]
  7. NEXIUM [Concomitant]
  8. DARVOCET-N (DEXTROPROPOCYPHENE NAPSILATE, PARACETAMOL) [Concomitant]
  9. IRON [Concomitant]
  10. VITAMIN B12 (HYDROXOCOBALAMIN) [Concomitant]
  11. COLCHICINE [Concomitant]
  12. COREG [Concomitant]
  13. NIASPAN [Concomitant]
  14. DIGOXIN [Concomitant]

REACTIONS (10)
  - CHEST DISCOMFORT [None]
  - MALAISE [None]
  - ERUCTATION [None]
  - NAUSEA [None]
  - DYSPNOEA [None]
  - CHEST PAIN [None]
  - URTICARIA [None]
  - RASH [None]
  - HYPERSENSITIVITY [None]
  - ABDOMINAL PAIN UPPER [None]
